FAERS Safety Report 13490958 (Version 4)
Quarter: 2018Q4

REPORT INFORMATION
  Report Type: Report from Study
  Country: None (occurrence: US)
  Receive Date: 20170427
  Receipt Date: 20181120
  Transmission Date: 20190204
  Serious: Yes (Hospitalization, Other)
  Sender: FDA-Public Use
  Company Number: US-ABBVIE-17K-163-1901303-00

PATIENT
  Age: 70 Year
  Sex: Female
  Weight: 45.4 kg

DRUGS (10)
  1. LOMOTIL [Concomitant]
     Active Substance: ATROPINE SULFATE\DIPHENOXYLATE HYDROCHLORIDE
     Indication: GASTROINTESTINAL STOMA OUTPUT ABNORMAL
  2. HUMIRA [Suspect]
     Active Substance: ADALIMUMAB
     Indication: CROHN^S DISEASE
     Route: 058
     Dates: start: 200801, end: 201409
  3. AMLODIPINE [Concomitant]
     Active Substance: AMLODIPINE BESYLATE
     Indication: HYPERTENSION
  4. LISINOPRIL. [Concomitant]
     Active Substance: LISINOPRIL
     Indication: HYPERTENSION
  5. HUMIRA [Suspect]
     Active Substance: ADALIMUMAB
     Route: 058
     Dates: end: 201810
  6. LORAZEPAM. [Concomitant]
     Active Substance: LORAZEPAM
     Indication: STRESS
  7. VITAMIN D [Concomitant]
     Active Substance: CHOLECALCIFEROL
     Indication: VITAMIN D DECREASED
  8. VITAMIN B12 [Concomitant]
     Active Substance: CYANOCOBALAMIN
     Indication: VITAMIN B12 DECREASED
  9. HUMIRA [Suspect]
     Active Substance: ADALIMUMAB
     Route: 058
     Dates: start: 201507, end: 20170320
  10. LORAZEPAM. [Concomitant]
     Active Substance: LORAZEPAM
     Indication: ANXIETY

REACTIONS (31)
  - Dehydration [Recovered/Resolved]
  - Raynaud^s phenomenon [Not Recovered/Not Resolved]
  - Skin discolouration [Recovered/Resolved]
  - White blood cell count decreased [Not Recovered/Not Resolved]
  - Post procedural complication [Not Recovered/Not Resolved]
  - Gastrointestinal stoma complication [Recovered/Resolved]
  - Gastroenterostomy [Unknown]
  - Limb operation [Recovered/Resolved with Sequelae]
  - Tendonitis [Recovered/Resolved]
  - Impaired healing [Not Recovered/Not Resolved]
  - Female genital tract fistula [Recovered/Resolved]
  - Stoma site oedema [Recovered/Resolved]
  - Impaired healing [Unknown]
  - Procedural pain [Not Recovered/Not Resolved]
  - Deep vein thrombosis [Unknown]
  - Bursitis [Recovered/Resolved]
  - Stomal hernia [Not Recovered/Not Resolved]
  - Stoma complication [Recovered/Resolved]
  - Stomal hernia [Recovered/Resolved]
  - Peripheral swelling [Recovered/Resolved]
  - Stoma site abscess [Recovering/Resolving]
  - Glomerular filtration rate decreased [Not Recovered/Not Resolved]
  - Influenza [Recovered/Resolved]
  - Colostomy [Unknown]
  - Deep vein thrombosis [Recovered/Resolved]
  - Blood parathyroid hormone increased [Not Recovered/Not Resolved]
  - Renal impairment [Not Recovered/Not Resolved]
  - Post procedural infection [Recovered/Resolved with Sequelae]
  - Hepatic cyst [Not Recovered/Not Resolved]
  - Stoma site haemorrhage [Unknown]
  - Haematochezia [Recovered/Resolved]

NARRATIVE: CASE EVENT DATE: 2010
